FAERS Safety Report 14034383 (Version 3)
Quarter: 2018Q3

REPORT INFORMATION
  Report Type: Other
  Country: None (occurrence: NZ)
  Receive Date: 20171003
  Receipt Date: 20180812
  Transmission Date: 20181010
  Serious: Yes (Other)
  Sender: FDA-Public Use
  Company Number: NZ-POPULATION COUNCIL, INC.-2028608

PATIENT
  Age: 22 Year
  Sex: Female

DRUGS (1)
  1. JADELLE [Suspect]
     Active Substance: LEVONORGESTREL
     Indication: CONTRACEPTION
     Route: 059
     Dates: start: 20120710

REACTIONS (4)
  - Device dislocation [Not Recovered/Not Resolved]
  - Drug ineffective [None]
  - Complication of device removal [None]
  - Ectopic pregnancy [None]

NARRATIVE: CASE EVENT DATE: 2016
